FAERS Safety Report 23772077 (Version 1)
Quarter: 2024Q2

REPORT INFORMATION
  Report Type: Spontaneous
  Country: DE (occurrence: DE)
  Receive Date: 20240423
  Receipt Date: 20240423
  Transmission Date: 20240716
  Serious: No
  Sender: FDA-Public Use
  Company Number: DE-ALKEM LABORATORIES LIMITED-DE-ALKEM-2024-05579

PATIENT

DRUGS (9)
  1. CLOBAZAM [Suspect]
     Active Substance: CLOBAZAM
     Indication: Epilepsy
     Dosage: 10 MILLIGRAM
     Route: 065
  2. LAMOTRIGINE [Suspect]
     Active Substance: LAMOTRIGINE
     Indication: Epilepsy
     Dosage: 375 MILLIGRAM
     Route: 065
  3. LACOSAMIDE [Suspect]
     Active Substance: LACOSAMIDE
     Indication: Epilepsy
     Dosage: 500 MILLIGRAM
     Route: 065
  4. LEVETIRACETAM [Suspect]
     Active Substance: LEVETIRACETAM
     Indication: Epilepsy
     Dosage: 3500 MILLIGRAM
     Route: 065
  5. OXCARBAZEPINE [Suspect]
     Active Substance: OXCARBAZEPINE
     Indication: Epilepsy
     Dosage: 1050 MILLIGRAM
     Route: 065
  6. BRIVARACETAM [Suspect]
     Active Substance: BRIVARACETAM
     Indication: Epilepsy
     Dosage: 250 MILLIGRAM
     Route: 065
  7. PERAMPANEL [Suspect]
     Active Substance: PERAMPANEL
     Indication: Epilepsy
     Dosage: 6 MILLIGRAM
     Route: 065
  8. VALPROATE [Suspect]
     Active Substance: VALPROIC ACID
     Indication: Epilepsy
     Dosage: 450 MILLIGRAM
     Route: 065
  9. ZONISAMIDE [Suspect]
     Active Substance: ZONISAMIDE
     Indication: Epilepsy
     Dosage: 200 MILLIGRAM
     Route: 065

REACTIONS (4)
  - Gait disturbance [Unknown]
  - Overdose [Unknown]
  - Off label use [Unknown]
  - Drug ineffective [Unknown]
